FAERS Safety Report 9635815 (Version 1)
Quarter: 2013Q4

REPORT INFORMATION
  Report Type: Spontaneous
  Country: US (occurrence: US)
  Receive Date: 20131021
  Receipt Date: 20131021
  Transmission Date: 20140711
  Serious: No
  Sender: FDA-Public Use
  Company Number: US-PURDUE-USA-2013-0103010

PATIENT
  Age: 47 Year
  Sex: Female

DRUGS (2)
  1. BUTRANS [Suspect]
     Indication: ANALGESIC THERAPY
     Dosage: 10 MCG/HR, UNK
     Route: 062
     Dates: start: 20130207
  2. BUTRANS [Suspect]
     Dosage: 20 MCG/HR, UNK
     Route: 062
     Dates: start: 20130226

REACTIONS (3)
  - Drug ineffective [Unknown]
  - Application site irritation [Unknown]
  - Application site rash [Unknown]
